FAERS Safety Report 9632226 (Version 1)
Quarter: 2013Q4

REPORT INFORMATION
  Report Type: Spontaneous
  Country: US (occurrence: US)
  Receive Date: 20131018
  Receipt Date: 20131018
  Transmission Date: 20140711
  Serious: Yes (Other)
  Sender: FDA-Public Use
  Company Number: ALCN2013US005143

PATIENT
  Age: 21 Year
  Sex: Female

DRUGS (2)
  1. PREDNISOLONE ACETATE [Suspect]
     Indication: POSTOPERATIVE CARE
     Dosage: UNK, QID
     Route: 047
  2. PREDNISOLONE ACETATE [Suspect]
     Dosage: 1 GTT, Q2H
     Route: 047

REACTIONS (2)
  - Diffuse lamellar keratitis [Recovered/Resolved with Sequelae]
  - Visual acuity reduced [Not Recovered/Not Resolved]
